FAERS Safety Report 7222779-6 (Version None)
Quarter: 2011Q1

REPORT INFORMATION
  Report Type: 
  Country: None (occurrence: None)
  Receive Date: 20110106
  Receipt Date: 20110106
  Transmission Date: 20110831
  Serious: Yes (Hospitalization)
  Sender: FDA-Public Use
  Company Number: None

PATIENT
  Age: 78 Year
  Sex: Female

DRUGS (18)
  1. TOPROL-XL [Concomitant]
  2. COUMADIN [Suspect]
     Indication: DEEP VEIN THROMBOSIS
     Dosage: 3MG DAILY PO
     Route: 048
  3. COUMADIN [Suspect]
     Indication: PULMONARY EMBOLISM
     Dosage: 3MG DAILY PO
     Route: 048
  4. LIDODERM [Concomitant]
  5. PERCOCET [Concomitant]
  6. TRIAMCINOLONE [Concomitant]
  7. NEURONTIN [Concomitant]
  8. CLONIDINE [Concomitant]
  9. OXYBUTYNIN [Concomitant]
  10. SENOKOT [Concomitant]
  11. VIT B6 [Concomitant]
  12. LEVOTHYROXINE [Concomitant]
  13. VIT C [Concomitant]
  14. COMBIVENT [Concomitant]
  15. FENTANYL [Concomitant]
  16. XANAX [Concomitant]
  17. ZINC SULFATE [Concomitant]
  18. NORVASC [Concomitant]

REACTIONS (7)
  - SUPRAVENTRICULAR TACHYCARDIA [None]
  - VAGINAL HAEMORRHAGE [None]
  - ILEUS [None]
  - COAGULOPATHY [None]
  - MOUTH HAEMORRHAGE [None]
  - INTERNATIONAL NORMALISED RATIO INCREASED [None]
  - INTERNATIONAL NORMALISED RATIO DECREASED [None]
